FAERS Safety Report 9664638 (Version 3)
Quarter: 2014Q2

REPORT INFORMATION
  Report Type: Report from Study
  Country: KR (occurrence: KR)
  Receive Date: 20131101
  Receipt Date: 20140528
  Transmission Date: 20141212
  Serious: Yes (Hospitalization)
  Sender: FDA-Public Use
  Company Number: KR-EISAI INC-E7389-04360-CLI-KR

PATIENT
  Age: 46 Year
  Sex: Female
  Weight: 60 kg

DRUGS (6)
  1. E7389 (BOLD) [Suspect]
     Indication: BREAST CANCER
     Route: 041
     Dates: start: 20130910, end: 20131008
  2. CALCIUM CARBONATE [Concomitant]
     Route: 048
     Dates: start: 20130912
  3. STILNOX CR [Concomitant]
     Route: 048
     Dates: start: 20131001, end: 20131007
  4. ALLEGRA [Concomitant]
     Route: 048
     Dates: start: 20131008
  5. HEXOMEDINE [Concomitant]
     Route: 048
     Dates: start: 20131008
  6. LEUCOSTIM [Concomitant]
     Indication: LEUKOPENIA
     Route: 058
     Dates: start: 20131008

REACTIONS (1)
  - Subcutaneous abscess [Recovered/Resolved]
